FAERS Safety Report 10874669 (Version 1)
Quarter: 2015Q1

REPORT INFORMATION
  Report Type: Spontaneous
  Country: US (occurrence: None)
  Receive Date: 20150223
  Receipt Date: 20150223
  Transmission Date: 20150721
  Serious: Yes (Disabling)
  Sender: FDA-Public Use
  Company Number: None

PATIENT
  Age: 50 Year
  Sex: Female
  Weight: 63.5 kg

DRUGS (15)
  1. IODINE [Concomitant]
     Active Substance: IODINE
  2. NALTREXONE [Concomitant]
     Active Substance: NALTREXONE
  3. LYSINE [Concomitant]
     Active Substance: LYSINE
  4. CIPROFLOXACIN. [Suspect]
     Active Substance: CIPROFLOXACIN
     Indication: URINARY TRACT INFECTION
     Dosage: 1 PILL
     Route: 048
     Dates: start: 20120404, end: 20140407
  5. VITAMIN C [Concomitant]
     Active Substance: ASCORBIC ACID
  6. VITAMIN E [Concomitant]
     Active Substance: .ALPHA.-TOCOPHEROL
  7. MUSHROOM COMPLEX [Concomitant]
  8. MAGNESIUM [Concomitant]
     Active Substance: MAGNESIUM
  9. MSN [Concomitant]
  10. BENTONITE CLAY [Concomitant]
  11. MULTIVITAMIN [Concomitant]
     Active Substance: VITAMINS
  12. LION^S MANE [Concomitant]
  13. VITAMIN D [Concomitant]
     Active Substance: CHOLECALCIFEROL
  14. MICA ROOT [Concomitant]
  15. N-ACETYL-CYSTEINE [Concomitant]

REACTIONS (6)
  - Neuropathy peripheral [None]
  - Drug hypersensitivity [None]
  - Tendon pain [None]
  - Arthropathy [None]
  - Perfume sensitivity [None]
  - Fatigue [None]

NARRATIVE: CASE EVENT DATE: 20120404
